FAERS Safety Report 11558017 (Version 1)
Quarter: 2015Q3

REPORT INFORMATION
  Report Type: Spontaneous
  Country: None (occurrence: None)
  Receive Date: 20150925
  Receipt Date: 20150925
  Transmission Date: 20151125
  Serious: No
  Sender: FDA-Public Use
  Company Number: None

PATIENT
  Age: 68 Year
  Sex: Male
  Weight: 73.48 kg

DRUGS (4)
  1. CPAP [Concomitant]
     Active Substance: DEVICE
  2. PREDNISONE 10 MG WEST [Suspect]
     Active Substance: PREDNISONE
     Indication: SWELLING
     Dosage: 12 DAY FOR 36 PILLS
     Route: 048
     Dates: start: 20150901, end: 20150912
  3. D3 [Concomitant]
     Active Substance: 25-HYDROXYCHOLECALCIFEROL, 5-TRANS-
  4. PREDNISONE 10 MG WEST [Suspect]
     Active Substance: PREDNISONE
     Indication: INFECTION
     Dosage: 12 DAY FOR 36 PILLS
     Route: 048
     Dates: start: 20150901, end: 20150912

REACTIONS (2)
  - Thrombophlebitis [None]
  - Drug ineffective [None]

NARRATIVE: CASE EVENT DATE: 20150910
